FAERS Safety Report 12966103 (Version 2)
Quarter: 2016Q4

REPORT INFORMATION
  Report Type: Spontaneous
  Country: US (occurrence: US)
  Receive Date: 20161122
  Receipt Date: 20161208
  Transmission Date: 20170207
  Serious: Yes (Hospitalization)
  Sender: FDA-Public Use
  Company Number: US-ALLERGAN-1676333US

PATIENT
  Age: 65 Year
  Sex: Female

DRUGS (1)
  1. AVYCAZ [Suspect]
     Active Substance: AVIBACTAM SODIUM\CEFTAZIDIME
     Indication: PRODUCT USED FOR UNKNOWN INDICATION
     Route: 042

REACTIONS (7)
  - Septic shock [Unknown]
  - Hypotension [Unknown]
  - Respiratory failure [Unknown]
  - Drug resistance [Unknown]
  - Pneumonia [Unknown]
  - Pyrexia [Unknown]
  - Mental status changes [Unknown]
